FAERS Safety Report 4558299-7 (Version None)
Quarter: 2005Q1

REPORT INFORMATION
  Report Type: 
  Country: None (occurrence: None)
  Receive Date: 20050103
  Receipt Date: 20041101
  Transmission Date: 20050727
  Serious: Yes (Other)
  Sender: FDA-Public Use
  Company Number: 2004UW22450

PATIENT
  Age: 56 Year
  Sex: Female
  Weight: 58.9 kg

DRUGS (2)
  1. CRESTOR [Suspect]
     Indication: HYPERCHOLESTEROLAEMIA
     Dosage: 5 MG DAILY PO
     Route: 048
     Dates: start: 20041028
  2. MULTIVITAMIN [Concomitant]

REACTIONS (1)
  - HOT FLUSH [None]
